FAERS Safety Report 20616648 (Version 1)
Quarter: 2022Q1

REPORT INFORMATION
  Report Type: Spontaneous
  Country: FR (occurrence: FR)
  Receive Date: 20220321
  Receipt Date: 20220321
  Transmission Date: 20220424
  Serious: Yes (Other)
  Sender: FDA-Public Use
  Company Number: FR-ORGANON-O2202FRA002170

PATIENT
  Age: 68 Year
  Sex: Male

DRUGS (3)
  1. TAHOR [Suspect]
     Active Substance: ATORVASTATIN CALCIUM
     Dosage: SEVERAL YEARS
  2. EZETIMIBE [Suspect]
     Active Substance: EZETIMIBE
     Dosage: SEVERAL YEARS
     Route: 048
     Dates: end: 202202
  3. KARDEGIC [Suspect]
     Active Substance: ASPIRIN DL-LYSINE
     Dosage: SEVERAL YEARS

REACTIONS (4)
  - Sensory loss [Unknown]
  - Peripheral coldness [Unknown]
  - Neuropathy peripheral [Unknown]
  - Paraesthesia [Unknown]
